FAERS Safety Report 10996184 (Version 1)
Quarter: 2015Q2

REPORT INFORMATION
  Report Type: Spontaneous
  Country: FR (occurrence: FR)
  Receive Date: 20150407
  Receipt Date: 20150407
  Transmission Date: 20150821
  Serious: Yes (Hospitalization)
  Sender: FDA-Public Use
  Company Number: FR-MYLANLABS-2015M1010063

PATIENT

DRUGS (10)
  1. PARACETAMOL MACOPHARMA [Suspect]
     Active Substance: ACETAMINOPHEN
     Indication: ANTIBIOTIC PROPHYLAXIS
     Dosage: 750 MG, TOTAL
     Route: 042
     Dates: start: 20150121, end: 20150121
  2. NAROPEINE [Suspect]
     Active Substance: ROPIVACAINE HYDROCHLORIDE
     Indication: ANAESTHESIA
     Dosage: 8 MG, TOTAL
     Dates: start: 20150121, end: 20150121
  3. PROFENID [Suspect]
     Active Substance: KETOPROFEN
     Indication: INFLAMMATION
     Dosage: 50 MG, TOTAL
     Route: 042
     Dates: start: 20150121, end: 20150121
  4. DEXAMETHASONE MYLAN [Suspect]
     Active Substance: DEXAMETHASONE
     Indication: INFLAMMATION
     Dosage: 8 MG, TOTAL
     Route: 042
     Dates: start: 20150121, end: 20150121
  5. VANCOMYCINE MYLAN [Suspect]
     Active Substance: VANCOMYCIN
     Indication: ANTIBIOTIC PROPHYLAXIS
     Dosage: 750 MG, TOTAL
     Route: 042
     Dates: start: 20150121, end: 20150121
  6. ULTANE [Suspect]
     Active Substance: SEVOFLURANE
     Indication: ANAESTHESIA
     Dosage: 10 ?G, TOTAL
     Route: 055
     Dates: start: 20150121, end: 20150121
  7. DIPRIVAN [Suspect]
     Active Substance: PROPOFOL
     Indication: ANAESTHESIA
     Dosage: 200 MG, TOTAL
     Route: 042
     Dates: start: 20150121, end: 20150121
  8. BETADINE [Suspect]
     Active Substance: POVIDONE-IODINE
     Indication: INFECTION PROPHYLAXIS
     Dosage: 1 DF, QD
     Route: 061
     Dates: start: 20150121, end: 20150121
  9. BETADINE [Suspect]
     Active Substance: POVIDONE-IODINE
     Indication: ANTIBIOTIC PROPHYLAXIS
     Dosage: UNK
     Route: 067
     Dates: start: 20150121
  10. SUFENTANIL MYLAN [Concomitant]
     Active Substance: SUFENTANIL
     Indication: PRODUCT USED FOR UNKNOWN INDICATION
     Dosage: 10 ?G, TOTAL
     Dates: start: 20150121, end: 20150121

REACTIONS (1)
  - Toxic epidermal necrolysis [Recovering/Resolving]

NARRATIVE: CASE EVENT DATE: 20150202
